FAERS Safety Report 17815017 (Version 3)
Quarter: 2020Q2

REPORT INFORMATION
  Report Type: Report from Study
  Country: US (occurrence: US)
  Receive Date: 20200522
  Receipt Date: 20200617
  Transmission Date: 20200714
  Serious: Yes (Life-Threatening, Hospitalization, Other)
  Sender: FDA-Public Use
  Company Number: US-SA-2020SA104871

PATIENT

DRUGS (30)
  1. SARILUMAB [Suspect]
     Active Substance: SARILUMAB
     Indication: COVID-19
     Dosage: REGN MAB1 400 MG
     Route: 042
     Dates: start: 20200330, end: 20200330
  2. LEVOFLOXACIN. [Concomitant]
     Active Substance: LEVOFLOXACIN
     Indication: PNEUMONIA
     Dosage: 500 MG, QOD
     Route: 042
     Dates: start: 20200329, end: 20200329
  3. MERREM [Concomitant]
     Active Substance: MEROPENEM
     Indication: COVID-19
  4. VANCOMYCIN [Concomitant]
     Active Substance: VANCOMYCIN
     Indication: PNEUMONIA VIRAL
     Dosage: 150 UNK, Q12H
     Route: 042
     Dates: start: 20200414, end: 20200416
  5. VASOPRESSIN. [Concomitant]
     Active Substance: VASOPRESSIN
     Indication: SHOCK
     Dosage: 0.04 UNITS/MIN
     Dates: start: 20200329, end: 20200329
  6. DOLUTEGRAVIR [Concomitant]
     Active Substance: DOLUTEGRAVIR
     Indication: HIV INFECTION
     Dosage: 50 MG, QD
     Dates: start: 20200330
  7. ACETAMINOPHEN. [Concomitant]
     Active Substance: ACETAMINOPHEN
     Indication: PYREXIA
     Dosage: 650 MG, PRN
     Dates: start: 20200329
  8. VANCOMYCIN [Concomitant]
     Active Substance: VANCOMYCIN
     Dosage: 1000 MG BID
     Route: 042
     Dates: start: 20200504, end: 20200510
  9. ZOSYN [Concomitant]
     Active Substance: PIPERACILLIN SODIUM\TAZOBACTAM SODIUM
     Indication: PNEUMONIA VIRAL
     Dosage: 4.5 G, Q6H
     Route: 042
     Dates: start: 20200409, end: 20200413
  10. HYDROXYCHLOROQUINE [Concomitant]
     Active Substance: HYDROXYCHLOROQUINE
     Indication: COVID-19
     Dosage: 400 MG, Q12H
     Route: 048
     Dates: start: 20200329, end: 20200330
  11. VANCOMYCIN [Concomitant]
     Active Substance: VANCOMYCIN
     Indication: PNEUMONIA VIRAL
     Dosage: 1250 MG, Q12H
     Route: 042
     Dates: start: 20200409, end: 20200414
  12. ACETAMINOPHEN. [Concomitant]
     Active Substance: ACETAMINOPHEN
     Indication: PYREXIA
     Dosage: 650 MG
     Dates: start: 20200329
  13. SARILUMAB [Suspect]
     Active Substance: SARILUMAB
     Dosage: REGN MAB1 400 MG
     Route: 042
     Dates: start: 20200421, end: 20200421
  14. CEFTRIAXONE. [Concomitant]
     Active Substance: CEFTRIAXONE
     Indication: PNEUMONIA
     Dosage: 1000 MG, QD
     Route: 042
     Dates: start: 20200328, end: 20200404
  15. HYDROXYCHLOROQUINE [Concomitant]
     Active Substance: HYDROXYCHLOROQUINE
     Dosage: 400 MG, QD
     Route: 048
     Dates: start: 20200330, end: 20200402
  16. MERREM [Concomitant]
     Active Substance: MEROPENEM
     Indication: PNEUMONIA VIRAL
  17. SARILUMAB [Suspect]
     Active Substance: SARILUMAB
     Dosage: REGN MAB1 400 MG
     Route: 042
     Dates: start: 20200414, end: 20200414
  18. LEVOFLOXACIN. [Concomitant]
     Active Substance: LEVOFLOXACIN
     Indication: COVID-19
  19. CEFTRIAXONE. [Concomitant]
     Active Substance: CEFTRIAXONE
     Indication: COVID-19
     Dosage: 2000 UNK
     Dates: start: 20200330, end: 20200331
  20. ZOSYN [Concomitant]
     Active Substance: PIPERACILLIN SODIUM\TAZOBACTAM SODIUM
     Indication: PNEUMONIA VIRAL
  21. ZOSYN [Concomitant]
     Active Substance: PIPERACILLIN SODIUM\TAZOBACTAM SODIUM
     Indication: COVID-19
  22. NOREPINEPHRINE. [Concomitant]
     Active Substance: NOREPINEPHRINE
     Indication: HYPOTENSION
     Dosage: 1-30 MCG/MIN
     Dates: start: 20200402, end: 20200420
  23. CASPOFUNGIN [Concomitant]
     Active Substance: CASPOFUNGIN
     Indication: FUNGAL INFECTION
     Dosage: 700 MG, SINGLE
     Dates: start: 20200428, end: 20200428
  24. EPIVIR [Concomitant]
     Active Substance: LAMIVUDINE
     Indication: HIV INFECTION
     Dosage: 150 MG, QID
     Dates: start: 20200329, end: 20200329
  25. DESCOVY [Concomitant]
     Active Substance: EMTRICITABINE\TENOFOVIR ALAFENAMIDE FUMARATE
     Indication: HIV INFECTION
     Dosage: UNK
     Dates: start: 20200331
  26. MERREM [Concomitant]
     Active Substance: MEROPENEM
     Indication: PNEUMONIA VIRAL
     Dosage: 1000 MG, Q8H
     Route: 042
     Dates: start: 20200413, end: 20200416
  27. VANCOMYCIN [Concomitant]
     Active Substance: VANCOMYCIN
     Indication: COVID-19
     Dosage: 1500 MG, BID
     Route: 042
     Dates: start: 20200428, end: 20200429
  28. VANCOMYCIN [Concomitant]
     Active Substance: VANCOMYCIN
     Indication: PNEUMONIA BACTERIAL
     Dosage: 1250 MG BID
     Route: 042
     Dates: start: 20200430, end: 20200504
  29. VANCOMYCIN [Concomitant]
     Active Substance: VANCOMYCIN
     Dosage: 1000 MG Q12H
     Route: 042
     Dates: start: 20200523, end: 20200528
  30. NOREPINEPHRINE. [Concomitant]
     Active Substance: NOREPINEPHRINE
     Dosage: 1-30MCG/MIN, CONTINUOUS INFUSION
     Route: 042
     Dates: start: 20200419

REACTIONS (7)
  - Deep vein thrombosis [Unknown]
  - Alanine aminotransferase increased [Recovered/Resolved]
  - Pneumonia bacterial [Unknown]
  - Hypotension [Recovered/Resolved]
  - Aspartate aminotransferase increased [Recovered/Resolved]
  - Bacteraemia [Recovered/Resolved]
  - Gangrene [Unknown]

NARRATIVE: CASE EVENT DATE: 20200402
